FAERS Safety Report 10313923 (Version 2)
Quarter: 2014Q3

REPORT INFORMATION
  Report Type: Spontaneous
  Country: JP (occurrence: JP)
  Receive Date: 20140718
  Receipt Date: 20140731
  Transmission Date: 20150326
  Serious: Yes (Hospitalization, Other)
  Sender: FDA-Public Use
  Company Number: JP-ELI_LILLY_AND_COMPANY-JP201407004164

PATIENT
  Age: 60 Year
  Sex: Female
  Weight: 51.5 kg

DRUGS (7)
  1. TASMOLIN                           /00079501/ [Concomitant]
     Indication: PRODUCT USED FOR UNKNOWN INDICATION
     Dosage: 2 MG, OTHER
     Route: 048
  2. NEOPERIDOL [Concomitant]
     Active Substance: HALOPERIDOL
     Indication: PRODUCT USED FOR UNKNOWN INDICATION
     Dosage: 50 MG, OTHER
  3. ZYPREXA [Suspect]
     Active Substance: OLANZAPINE
     Indication: SCHIZOPHRENIA
     Dosage: 20 MG, OTHER
     Route: 048
     Dates: start: 20130222, end: 20131113
  4. LITHIUM [Concomitant]
     Active Substance: LITHIUM CARBONATE
     Indication: PRODUCT USED FOR UNKNOWN INDICATION
     Dosage: 600 MG, OTHER
     Route: 048
  5. MAGMITT [Concomitant]
     Active Substance: MAGNESIUM OXIDE
     Indication: PRODUCT USED FOR UNKNOWN INDICATION
  6. FLUNITRAZEPAM [Concomitant]
     Active Substance: FLUNITRAZEPAM
     Indication: PRODUCT USED FOR UNKNOWN INDICATION
  7. SENNOSIDE                          /00571901/ [Concomitant]
     Active Substance: SENNOSIDE A\SENNOSIDE B\SENNOSIDES
     Indication: PRODUCT USED FOR UNKNOWN INDICATION

REACTIONS (10)
  - Anger [Recovered/Resolved]
  - Soliloquy [Recovered/Resolved]
  - Incontinence [Recovered/Resolved]
  - Drug ineffective [Unknown]
  - Diabetic hyperosmolar coma [Recovered/Resolved]
  - Movement disorder [Recovered/Resolved]
  - Somnolence [Recovered/Resolved]
  - Diabetes mellitus [Not Recovered/Not Resolved]
  - Sedation [Recovered/Resolved]
  - Abnormal behaviour [Recovered/Resolved]

NARRATIVE: CASE EVENT DATE: 2013
